FAERS Safety Report 14992729 (Version 2)
Quarter: 2018Q3

REPORT INFORMATION
  Report Type: Report from Study
  Country: IT (occurrence: IT)
  Receive Date: 20180609
  Receipt Date: 20180703
  Transmission Date: 20181010
  Serious: Yes (Other)
  Sender: FDA-Public Use
  Company Number: IT-ROCHE-2137082

PATIENT
  Age: 58 Year
  Sex: Female

DRUGS (4)
  1. ATENOLOL. [Concomitant]
     Active Substance: ATENOLOL
     Route: 048
  2. TALOFEN [Concomitant]
     Active Substance: PROMAZINE HYDROCHLORIDE
     Indication: TRANSIENT PSYCHOSIS
     Dosage: UNIT DOSE: 40 [DRP]
     Route: 048
  3. VALIUM [Suspect]
     Active Substance: DIAZEPAM
     Indication: INSOMNIA
     Dosage: UNIT DOSE: 20 [DRP]?5 MG/ML ORAL DROPS, SOLUTION
     Route: 048
  4. NEULEPTIL [Concomitant]
     Active Substance: PERICIAZINE
     Indication: PSYCHOTIC DISORDER
     Dosage: UNIT DOSE: 20 [DRP]
     Route: 048

REACTIONS (1)
  - Sopor [Recovered/Resolved]

NARRATIVE: CASE EVENT DATE: 20180528
